FAERS Safety Report 16343232 (Version 1)
Quarter: 2019Q2

REPORT INFORMATION
  Report Type: Spontaneous
  Country: US (occurrence: US)
  Receive Date: 20190521
  Receipt Date: 20190521
  Transmission Date: 20190711
  Serious: Yes (Hospitalization)
  Sender: FDA-Public Use
  Company Number: None

PATIENT
  Sex: Male

DRUGS (9)
  1. POTASSIUM [Concomitant]
     Active Substance: POTASSIUM
  2. TAMSULOSIN [Concomitant]
     Active Substance: TAMSULOSIN
  3. AMOX/K CLAV [Concomitant]
     Active Substance: AMOXICILLIN\CLAVULANATE POTASSIUM
  4. STOOL SOFTENER (DOCUSATE) [Concomitant]
     Active Substance: DOCUSATE
  5. XARELTO [Concomitant]
     Active Substance: RIVAROXABAN
  6. CARVEDILOL. [Concomitant]
     Active Substance: CARVEDILOL
  7. DILTIAZEM. [Concomitant]
     Active Substance: DILTIAZEM
  8. ERIVEDGE [Suspect]
     Active Substance: VISMODEGIB
     Indication: BASAL CELL CARCINOMA
     Route: 048
     Dates: start: 20180125
  9. OMEPRAZOLE. [Concomitant]
     Active Substance: OMEPRAZOLE

REACTIONS (5)
  - Pain in extremity [None]
  - Infection [None]
  - Muscle spasms [None]
  - Gait inability [None]
  - Pain [None]
